FAERS Safety Report 10642472 (Version 1)
Quarter: 2014Q4

REPORT INFORMATION
  Report Type: Spontaneous
  Country: DE (occurrence: DE)
  Receive Date: 20141210
  Receipt Date: 20141210
  Transmission Date: 20150529
  Serious: Yes (Congenital Anomaly, Other)
  Sender: FDA-Public Use
  Company Number: DE-RANBAXY-2014RR-89931

PATIENT
  Age: 1 Day
  Sex: Male

DRUGS (13)
  1. CEFUROXIME. [Concomitant]
     Active Substance: CEFUROXIME
     Indication: INFECTION PROPHYLAXIS
     Dosage: 1.5 G, QD, ON GESTATIONAL WEEK 39.4
     Route: 064
     Dates: start: 20130308, end: 20130308
  2. PROTAPHANE [Concomitant]
     Active Substance: INSULIN HUMAN
     Indication: GESTATIONAL DIABETES
     Dosage: DURING THE 3RD TRIMESTER
     Route: 064
  3. L-THYROXIN [Concomitant]
     Active Substance: LEVOTHYROXINE SODIUM
     Indication: HYPOTHYROIDISM
     Dosage: 100 MCG/DAY (TO 75), DURING GESTATIONAL WEEKS 0-39.5
     Route: 064
     Dates: start: 20120604, end: 20130309
  4. SERTRALINE [Suspect]
     Active Substance: SERTRALINE HYDROCHLORIDE
     Indication: BIPOLAR DISORDER
     Dosage: 100 MG, QD, DURING GESTATIONAL WEEKS 0-39.5
     Route: 064
     Dates: start: 20120604, end: 20130309
  5. FOLSAURE [Concomitant]
     Active Substance: FOLIC ACID
     Indication: PROPHYLAXIS OF NEURAL TUBE DEFECT
     Dosage: 5 MG, QD
     Route: 064
     Dates: start: 20120604, end: 20130309
  6. CELESTAN [Concomitant]
     Active Substance: BETAMETHASONE
     Indication: MATERNAL THERAPY TO ENHANCE FOETAL LUNG MATURITY
     Dosage: 4 MG, QD, DURING GESTATIONAL WEEKS 32.2-32.3
     Route: 064
     Dates: start: 20130116, end: 20130117
  7. PARTUSISTEN [Concomitant]
     Active Substance: FENOTEROL
     Indication: PREMATURE LABOUR
     Dosage: ON GESTATIONAL WEEK 31.4
     Route: 064
     Dates: start: 20130111, end: 20130111
  8. LAMOTRIGINE. [Suspect]
     Active Substance: LAMOTRIGINE
     Indication: BIPOLAR DISORDER
     Dosage: 150 MG, BID, DURING GESTATIONAL WEEKS 0-39.5
     Route: 064
     Dates: start: 20120604, end: 20130309
  9. AMOXYPEN [Concomitant]
     Active Substance: AMOXICILLIN
     Indication: C-REACTIVE PROTEIN INCREASED
     Dosage: 500 MG, TID, DURING GESTATIONAL WEEKS 32-34.4
     Route: 064
  10. QUILONUM [Suspect]
     Active Substance: LITHIUM CARBONATE
     Indication: BIPOLAR DISORDER
     Dosage: 1350 MG/DAY (TO 1150 MG), DURING GESTATIONAL WEEKS 0-39.5
     Route: 064
     Dates: start: 20120604, end: 20130309
  11. SEROQUEL [Suspect]
     Active Substance: QUETIAPINE FUMARATE
     Indication: BIPOLAR DISORDER
     Dosage: 600 MG, QD, DURING GESTATIONAL WEEKS 0-39.5
     Route: 064
     Dates: start: 20120604, end: 20130309
  12. METFORMIN [Concomitant]
     Active Substance: METFORMIN HYDROCHLORIDE
     Indication: POLYCYSTIC OVARIES
     Dosage: 1500 MG, DAILY, DURING GESTATIONAL WEEKS 0-7.1
     Route: 064
     Dates: start: 20120604, end: 20120724
  13. CYTOTEC [Concomitant]
     Active Substance: MISOPROSTOL
     Indication: LABOUR INDUCTION
     Dosage: ON GESTATIONAL WEEK 39.4
     Route: 064
     Dates: start: 20130308, end: 20130308

REACTIONS (5)
  - Pyloric stenosis [Recovered/Resolved]
  - Vesicoureteric reflux [Not Recovered/Not Resolved]
  - Agitation neonatal [Recovered/Resolved]
  - Haemangioma congenital [Unknown]
  - Kidney duplex [Not Recovered/Not Resolved]

NARRATIVE: CASE EVENT DATE: 20130309
